FAERS Safety Report 15187703 (Version 2)
Quarter: 2018Q3

REPORT INFORMATION
  Report Type: Report from Study
  Country: JP (occurrence: JP)
  Receive Date: 20180724
  Receipt Date: 20180726
  Transmission Date: 20181010
  Serious: Yes (Death)
  Sender: FDA-Public Use
  Company Number: JP-BEH-2018091103

PATIENT
  Age: 78 Year
  Sex: Female
  Weight: 59.1 kg

DRUGS (5)
  1. BERIPLEX P/N [Suspect]
     Active Substance: COAGULATION FACTOR IX HUMAN\COAGULATION FACTOR VII HUMAN\COAGULATION FACTOR X HUMAN\PROTEIN C\PROTEIN S HUMAN\PROTHROMBIN
     Indication: THERAPEUTIC PROCEDURE
     Dosage: 2000 IU, UNK
     Route: 042
     Dates: start: 20180301
  2. DOBUPUM [Concomitant]
     Active Substance: DOBUTAMINE HYDROCHLORIDE
     Dosage: UNK
     Route: 065
     Dates: start: 20180301, end: 20180310
  3. WARFARIN [Concomitant]
     Active Substance: WARFARIN
     Dosage: 1.25 MG, UNK
     Route: 048
  4. KAYTWO N [Concomitant]
     Active Substance: MENATETRENONE
     Indication: PROCOAGULANT THERAPY
     Dosage: 20 MG, UNK
     Route: 065
     Dates: start: 20180301, end: 20180301
  5. FIBRINOGEN [Concomitant]
     Active Substance: FIBRINOGEN HUMAN
     Dosage: UNK
     Route: 065
     Dates: start: 20180301, end: 20180301

REACTIONS (3)
  - Multiple organ dysfunction syndrome [Fatal]
  - Intra-abdominal haemorrhage [Fatal]
  - Shock haemorrhagic [Fatal]
